FAERS Safety Report 17283989 (Version 1)
Quarter: 2020Q1

REPORT INFORMATION
  Report Type: Spontaneous
  Country: US (occurrence: US)
  Receive Date: 20200117
  Receipt Date: 20200117
  Transmission Date: 20200409
  Serious: No
  Sender: FDA-Public Use
  Company Number: US-SUNOVION-2019SUN005673

PATIENT
  Sex: Male
  Weight: 72.56 kg

DRUGS (1)
  1. LEVALBUTEROL TARTRATE. [Suspect]
     Active Substance: LEVALBUTEROL TARTRATE
     Indication: WHEEZING
     Dosage: UNK (AS NEEDED)
     Route: 055
     Dates: start: 201712

REACTIONS (2)
  - Product administration error [Unknown]
  - Drug ineffective [Not Recovered/Not Resolved]
